FAERS Safety Report 16029151 (Version 3)
Quarter: 2019Q3

REPORT INFORMATION
  Report Type: Spontaneous
  Country: US (occurrence: US)
  Receive Date: 20190304
  Receipt Date: 20190903
  Transmission Date: 20191004
  Serious: Yes (Other)
  Sender: FDA-Public Use
  Company Number: US-SA-2019SA052725

PATIENT
  Age: 52 Year
  Sex: Female
  Weight: 58 kg

DRUGS (28)
  1. CITALOPRAM [Concomitant]
     Active Substance: CITALOPRAM HYDROBROMIDE
     Dosage: UNK
     Route: 065
     Dates: start: 20090101
  2. ZOLPIDEM [Concomitant]
     Active Substance: ZOLPIDEM TARTRATE
     Dosage: UNK UNK, UNK
     Dates: start: 20090101
  3. TAXOTERE [Suspect]
     Active Substance: DOCETAXEL
     Indication: BREAST CANCER FEMALE
     Dosage: 120 MG, Q3W
     Route: 042
     Dates: start: 20120328, end: 20120328
  4. CIPROFLOXACIN. [Concomitant]
     Active Substance: CIPROFLOXACIN
     Dosage: UNK UNK, UNK
     Dates: start: 20090101
  5. PREDNISONE. [Concomitant]
     Active Substance: PREDNISONE
     Dosage: UNK UNK, UNK
     Dates: start: 20090101
  6. METHYLPRED [Concomitant]
     Active Substance: METHYLPREDNISOLONE
     Dosage: UNK UNK, UNK
     Dates: start: 20090101
  7. LINDANE. [Concomitant]
     Active Substance: LINDANE
     Dosage: UNK UNK, UNK
     Dates: start: 20090101
  8. LIDO [Concomitant]
     Dosage: UNK UNK, UNK
     Dates: start: 20090101
  9. ATORVASTATIN [Concomitant]
     Active Substance: ATORVASTATIN
     Dosage: UNK UNK, UNK
     Dates: start: 20090101
  10. PARAPLATIN [Concomitant]
     Active Substance: CARBOPLATIN
     Indication: BREAST CANCER FEMALE
     Route: 065
  11. OMEPRAZOLE. [Concomitant]
     Active Substance: OMEPRAZOLE
     Dosage: UNK UNK, UNK
     Dates: start: 20090101
  12. RANITIDINE. [Concomitant]
     Active Substance: RANITIDINE
     Dosage: UNK UNK, UNK
     Dates: start: 20090101
  13. ALPROZOLAM [Concomitant]
     Active Substance: ALPRAZOLAM
     Dosage: UNK UNK, UNK
     Dates: start: 20090101
  14. MEPERIDINE HYDROCHLORIDE. [Concomitant]
     Active Substance: MEPERIDINE HYDROCHLORIDE
     Dosage: UNK UNK, UNK
  15. AZITHROMYCIN ANHYDROUS. [Concomitant]
     Active Substance: AZITHROMYCIN ANHYDROUS
     Dosage: UNK UNK, UNK
     Dates: start: 20090101
  16. AMOXICILLIN. [Concomitant]
     Active Substance: AMOXICILLIN
     Dosage: UNK UNK, UNK
     Dates: start: 20090101
  17. CYTOXAN [Concomitant]
     Active Substance: CYCLOPHOSPHAMIDE
     Indication: BREAST CANCER FEMALE
     Dosage: UNK UNK, UNK
     Route: 065
  18. METOPROLOL. [Concomitant]
     Active Substance: METOPROLOL
     Dosage: UNK UNK, UNK
     Route: 065
     Dates: start: 20090101
  19. SERTRALINE [Concomitant]
     Active Substance: SERTRALINE HYDROCHLORIDE
     Dosage: UNK UNK, UNK
     Dates: start: 20090101
  20. VITAMIN D [COLECALCIFEROL] [Concomitant]
     Active Substance: CHOLECALCIFEROL
     Dosage: UNK
     Route: 065
     Dates: start: 20120101, end: 20121231
  21. HYDROXINE [Concomitant]
     Active Substance: HYDROXYZINE HYDROCHLORIDE
     Dosage: UNK UNK, UNK
     Dates: start: 20090101
  22. STROMECTOL [Concomitant]
     Active Substance: IVERMECTIN
     Dosage: UNK UNK, UNK
     Dates: start: 20090101
  23. TAXOTERE [Suspect]
     Active Substance: DOCETAXEL
     Dosage: 120 MG, Q3W
     Route: 042
     Dates: start: 20120711, end: 20120711
  24. TERCONAZOLE. [Concomitant]
     Active Substance: TERCONAZOLE
     Dosage: UNK UNK, UNK
     Dates: start: 20090101
  25. DESONIDE. [Concomitant]
     Active Substance: DESONIDE
     Dosage: UNK UNK, UNK
     Dates: start: 20090101
  26. CLONAZEPAM. [Concomitant]
     Active Substance: CLONAZEPAM
     Dosage: UNK UNK, UNK
     Dates: start: 20090101
  27. KETOCONAZOLE;TRIAMCINOLONE [Concomitant]
     Dosage: UNK UNK, UNK
     Dates: start: 20090101
  28. ROSUVASTATIN. [Concomitant]
     Active Substance: ROSUVASTATIN
     Dosage: UNK UNK, UNK
     Dates: start: 20090101

REACTIONS (2)
  - Psychological trauma [Unknown]
  - Alopecia [Recovering/Resolving]

NARRATIVE: CASE EVENT DATE: 20120501
